FAERS Safety Report 5913011-1 (Version None)
Quarter: 2008Q4

REPORT INFORMATION
  Report Type: 
  Country: None (occurrence: None)
  Receive Date: 20081008
  Receipt Date: 20080926
  Transmission Date: 20090506
  Serious: Yes (Other)
  Sender: FDA-Public Use
  Company Number: US-PFIZER INC-2008082245

PATIENT
  Sex: Male

DRUGS (6)
  1. LYRICA [Suspect]
     Indication: ANXIETY
     Dates: start: 20080617
  2. LYRICA [Suspect]
     Indication: PSYCHOTIC DISORDER
  3. CLONAZEPAM [Suspect]
     Indication: CONVULSION
  4. LORAZEPAM [Suspect]
     Indication: CONVULSION
  5. TRILEPTAL [Concomitant]
     Indication: CONVULSION
  6. PROPRANOLOL [Concomitant]

REACTIONS (9)
  - ANXIETY [None]
  - CONVULSION [None]
  - FORMICATION [None]
  - HALLUCINATION [None]
  - HEART RATE DECREASED [None]
  - HYPERTENSION [None]
  - NOCTURNAL DYSPNOEA [None]
  - RESPIRATORY DISORDER [None]
  - URINARY TRACT DISORDER [None]
